FAERS Safety Report 4450336-3 (Version None)
Quarter: 2004Q3

REPORT INFORMATION
  Report Type: 
  Country: None (occurrence: None)
  Receive Date: 20040914
  Receipt Date: 20040830
  Transmission Date: 20050211
  Serious: No
  Sender: FDA-Public Use
  Company Number: 2004AP04160

PATIENT
  Age: 60 Year
  Sex: Male

DRUGS (4)
  1. IRESSA [Suspect]
     Indication: LUNG ADENOCARCINOMA
     Dosage: 250 MG DAILY PO
     Route: 048
     Dates: start: 20040626, end: 20040806
  2. DEPAKENE [Suspect]
     Indication: CONVULSION PROPHYLAXIS
     Dosage: 400 MG DAILY PO
     Route: 048
     Dates: start: 20040625, end: 20040730
  3. ADALAT [Concomitant]
  4. CODEINE PHOSPHATE [Concomitant]

REACTIONS (7)
  - ECZEMA [None]
  - INTERSTITIAL LUNG DISEASE [None]
  - PERICARDIAL EFFUSION [None]
  - PHARYNGEAL ERYTHEMA [None]
  - PLATELET COUNT DECREASED [None]
  - PLEURAL EFFUSION [None]
  - PULMONARY OEDEMA [None]
